FAERS Safety Report 21167738 (Version 2)
Quarter: 2022Q3

REPORT INFORMATION
  Report Type: Spontaneous
  Country: US (occurrence: None)
  Receive Date: 20220803
  Receipt Date: 20220810
  Transmission Date: 20221027
  Serious: No
  Sender: FDA-Public Use
  Company Number: 2022A270911

PATIENT
  Weight: 111.1 kg

DRUGS (1)
  1. SYMBICORT [Suspect]
     Active Substance: BUDESONIDE\FORMOTEROL FUMARATE DIHYDRATE
     Indication: Asthma
     Dosage: 160UG/4.5UG, UNKNOWN FREQUENCY UNKNOWN
     Route: 055

REACTIONS (5)
  - Weight decreased [Unknown]
  - Sinusitis [Unknown]
  - Asthma [Unknown]
  - Wrong technique in device usage process [Unknown]
  - Product use issue [Unknown]
